FAERS Safety Report 7159568-7 (Version None)
Quarter: 2010Q4

REPORT INFORMATION
  Report Type: 
  Country: None (occurrence: None)
  Receive Date: 20101214
  Receipt Date: 20100922
  Transmission Date: 20110411
  Serious: No
  Sender: FDA-Public Use
  Company Number: US-ASTRAZENECA-2010SE44776

PATIENT
  Age: 72 Year
  Sex: Female

DRUGS (3)
  1. CRESTOR [Suspect]
     Indication: BLOOD CHOLESTEROL INCREASED
     Route: 048
     Dates: start: 20100801
  2. BONIVA [Concomitant]
  3. SYNTHROID [Concomitant]

REACTIONS (4)
  - DYSGEUSIA [None]
  - MYALGIA [None]
  - NAUSEA [None]
  - NIGHTMARE [None]
